FAERS Safety Report 4438562-0 (Version None)
Quarter: 2004Q3

REPORT INFORMATION
  Report Type: 
  Country: None (occurrence: None)
  Receive Date: 20040728
  Receipt Date: 20040415
  Transmission Date: 20050211
  Serious: No
  Sender: FDA-Public Use
  Company Number: USA040158066

PATIENT
  Sex: Female

DRUGS (2)
  1. STRATTERA [Suspect]
     Indication: COMMUNICATION DISORDER
     Dosage: 25 M/1 IN THE MORNING
     Dates: start: 20030210, end: 20030301
  2. PRENATAL VITAMINS [Concomitant]

REACTIONS (1)
  - INFECTION [None]
